FAERS Safety Report 8997011 (Version 2)
Quarter: 2013Q2

REPORT INFORMATION
  Report Type: Spontaneous
  Country: US (occurrence: US)
  Receive Date: 20130104
  Receipt Date: 20130408
  Transmission Date: 20140414
  Serious: Yes (Other)
  Sender: FDA-Public Use
  Company Number: US-AMGEN-USASP2012083874

PATIENT
  Sex: Female

DRUGS (1)
  1. PROLIA [Suspect]
     Indication: OSTEOPOROSIS POSTMENOPAUSAL
     Dosage: UNK UNK, Q6MO SINCE 2-3 YEARS

REACTIONS (7)
  - Parkinson^s disease [Unknown]
  - Dental operation [Unknown]
  - Device breakage [Unknown]
  - Bronchitis [Unknown]
  - Sinusitis [Unknown]
  - Feeling abnormal [Unknown]
  - Urinary tract infection [Unknown]
